FAERS Safety Report 9829258 (Version 2)
Quarter: 2014Q1

REPORT INFORMATION
  Report Type: Report from Study
  Country: GB (occurrence: GB)
  Receive Date: 20140120
  Receipt Date: 20140306
  Transmission Date: 20141002
  Serious: Yes (Death, Other)
  Sender: FDA-Public Use
  Company Number: GB-AMGEN-GBRCT2014002952

PATIENT
  Age: 81 Year
  Sex: Female
  Weight: 80 kg

DRUGS (2)
  1. ETANERCEPT [Suspect]
     Indication: RHEUMATOID ARTHRITIS
     Dosage: 25 MG, 2 TIMES/WK
     Route: 065
     Dates: start: 20090815, end: 20100415
  2. PREDNISOLONE [Concomitant]
     Dosage: UNK

REACTIONS (7)
  - Pneumonia aspiration [Fatal]
  - Metastases to liver [Fatal]
  - Colon cancer [Fatal]
  - Rheumatoid arthritis [Fatal]
  - Renal failure acute [Fatal]
  - Urosepsis [Fatal]
  - Clostridium difficile infection [Fatal]
